FAERS Safety Report 9249499 (Version 1)
Quarter: 2013Q2

REPORT INFORMATION
  Report Type: Spontaneous
  Country: IL (occurrence: IL)
  Receive Date: 20130423
  Receipt Date: 20130423
  Transmission Date: 20140414
  Serious: Yes (Disabling, Other)
  Sender: FDA-Public Use
  Company Number: IL-ABBOTT-13P-082-1077951-00

PATIENT
  Sex: Female

DRUGS (1)
  1. HUMIRA [Suspect]
     Indication: PRODUCT USED FOR UNKNOWN INDICATION
     Route: 058

REACTIONS (5)
  - Unevaluable event [Unknown]
  - Condition aggravated [Unknown]
  - Drug ineffective [Unknown]
  - Abasia [Unknown]
  - Wheelchair user [Unknown]
